FAERS Safety Report 5877551-6 (Version None)
Quarter: 2008Q3

REPORT INFORMATION
  Report Type: 
  Country: None (occurrence: None)
  Receive Date: 20080911
  Receipt Date: 20080902
  Transmission Date: 20090109
  Serious: Yes (Hospitalization)
  Sender: FDA-Public Use
  Company Number: PHHY2008GB18638

PATIENT
  Age: 80 Year
  Sex: Male
  Weight: 63.4 kg

DRUGS (3)
  1. CARBAMAZEPINE [Suspect]
     Indication: EPILEPSY
     Dosage: 400 MG, QD
     Route: 048
  2. OXALIPLATIN [Interacting]
     Indication: COLORECTAL CANCER METASTATIC
     Dosage: 250 MG, UNK
     Route: 042
     Dates: start: 20071119, end: 20080710
  3. CAPECITABINE [Interacting]
     Indication: COLORECTAL CANCER METASTATIC
     Dosage: 1000 MG/M2, UNK
     Route: 048
     Dates: start: 20071119, end: 20080710

REACTIONS (3)
  - ANKLE FRACTURE [None]
  - DRUG INTERACTION [None]
  - EPILEPSY [None]
